FAERS Safety Report 5050383-7 (Version None)
Quarter: 2006Q3

REPORT INFORMATION
  Report Type: 
  Country: None (occurrence: None)
  Receive Date: 20060707
  Receipt Date: 20060627
  Transmission Date: 20061208
  Serious: Yes (Other)
  Sender: FDA-Public Use
  Company Number: 200610825BYL

PATIENT
  Age: 89 Year
  Sex: Female
  Weight: 54.5 kg

DRUGS (11)
  1. AVELOX [Suspect]
     Indication: BRONCHITIS ACUTE
     Dosage: 400 MG, QD, ORAL
     Route: 048
     Dates: start: 20060223, end: 20060227
  2. KLARICID [Concomitant]
  3. DIART [Concomitant]
  4. NORVASC [Concomitant]
  5. ZESTROMIN [Concomitant]
  6. AIROCOOL [Concomitant]
  7. SIBELANT SANKEN [Concomitant]
  8. METHYCOOL CHEMIPHAR [Concomitant]
  9. MEIACT [Concomitant]
  10. MAO-BUSHI-SAISHIN-TO [Concomitant]
  11. CRAVIT [Concomitant]

REACTIONS (1)
  - EOSINOPHILIC PNEUMONIA [None]
